FAERS Safety Report 16162893 (Version 1)
Quarter: 2019Q2

REPORT INFORMATION
  Report Type: Spontaneous
  Country: US (occurrence: US)
  Receive Date: 20190405
  Receipt Date: 20190405
  Transmission Date: 20190711
  Serious: No
  Sender: FDA-Public Use
  Company Number: US-MYLANLABS-2019M1026466

PATIENT
  Sex: Male

DRUGS (2)
  1. MUSE [Suspect]
     Active Substance: ALPROSTADIL
     Dosage: 1000 MILLIGRAM
     Route: 066
  2. MUSE [Suspect]
     Active Substance: ALPROSTADIL
     Indication: PRODUCT USED FOR UNKNOWN INDICATION
     Dosage: 500 MILLIGRAM
     Route: 066

REACTIONS (1)
  - Drug ineffective [Not Recovered/Not Resolved]
